FAERS Safety Report 9264148 (Version 2)
Quarter: 2013Q2

REPORT INFORMATION
  Report Type: Spontaneous
  Country: CH (occurrence: CH)
  Receive Date: 20130430
  Receipt Date: 20130510
  Transmission Date: 20140414
  Serious: Yes (Life-Threatening, Hospitalization)
  Sender: FDA-Public Use
  Company Number: CH-TEVA-400808ISR

PATIENT
  Age: 44 Year
  Sex: Female
  Weight: 60 kg

DRUGS (7)
  1. OLFEN-75 RETARD DEPOTABS [Suspect]
     Indication: PAIN
     Dosage: 150 MILLIGRAM DAILY;
     Route: 048
     Dates: start: 20130327
  2. NOVALGIN FILM-COATED TABLETS [Suspect]
     Indication: PAIN
     Dosage: 4000 MILLIGRAM DAILY;
     Route: 048
     Dates: start: 20130327, end: 20130330
  3. AGOPTON 30 MG TABLETS [Concomitant]
     Indication: GASTROOESOPHAGEAL REFLUX DISEASE
     Dosage: 30 MILLIGRAM DAILY;
     Route: 048
     Dates: start: 2009
  4. SIRDALUD 4 MG TABLETS [Concomitant]
     Indication: PAIN
     Dosage: 4 MILLIGRAM DAILY;
     Route: 048
     Dates: start: 2002
  5. TOPAMAX [Concomitant]
     Indication: MIGRAINE
     Dosage: 100 MILLIGRAM DAILY;
     Route: 048
     Dates: start: 2011
  6. CITALOPRAM [Concomitant]
     Indication: DEPRESSION
     Dosage: 20 MILLIGRAM DAILY;
     Route: 048
     Dates: start: 2005
  7. VICTOZA [Concomitant]
     Indication: TYPE 2 DIABETES MELLITUS
     Dosage: .6 MILLIGRAM DAILY;
     Route: 058
     Dates: start: 2011

REACTIONS (5)
  - Type I hypersensitivity [Recovered/Resolved]
  - Loss of consciousness [Recovered/Resolved]
  - Dyspnoea [Recovered/Resolved]
  - Swollen tongue [Recovered/Resolved]
  - Cyanosis central [Recovered/Resolved]
